FAERS Safety Report 8924967 (Version 1)
Quarter: 2012Q4

REPORT INFORMATION
  Report Type: 
  Country: FR (occurrence: FR)
  Receive Date: 20121126
  Receipt Date: 20121126
  Transmission Date: 20130627
  Serious: Yes (Death, Hospitalization)
  Sender: FDA-Public Use
  Company Number: FR-ELI_LILLY_AND_COMPANY-FR201211005242

PATIENT
  Age: 78 Year
  Sex: Male

DRUGS (1)
  1. ALIMTA [Suspect]
     Dosage: UNK
     Dates: start: 20121011

REACTIONS (7)
  - Death [Fatal]
  - Constipation [Unknown]
  - Diarrhoea [Unknown]
  - General physical health deterioration [Unknown]
  - Febrile bone marrow aplasia [Unknown]
  - Pseudomonal sepsis [Unknown]
  - Respiratory disorder [Unknown]
